FAERS Safety Report 23463771 (Version 1)
Quarter: 2024Q1

REPORT INFORMATION
  Report Type: Spontaneous
  Country: IT (occurrence: IT)
  Receive Date: 20240201
  Receipt Date: 20240201
  Transmission Date: 20240410
  Serious: Yes (Hospitalization, Other)
  Sender: FDA-Public Use
  Company Number: IT-CELLTRION INC.-2023IT023554

PATIENT

DRUGS (6)
  1. RITUXIMAB [Suspect]
     Active Substance: RITUXIMAB
     Indication: Myelin oligodendrocyte glycoprotein antibody-associated disease
     Dosage: 1000 MILLIGRAM, Q2WEEKS, FOLLOWED BY NEW COURSES EVERY 6 MONTHS.
     Route: 042
     Dates: start: 202004, end: 202202
  2. INTERFERON BETA-1A [Concomitant]
     Active Substance: INTERFERON BETA-1A
     Indication: Multiple sclerosis
  3. NATALIZUMAB [Concomitant]
     Active Substance: NATALIZUMAB
  4. TOCILIZUMAB [Concomitant]
     Active Substance: TOCILIZUMAB
     Indication: Myelin oligodendrocyte glycoprotein antibody-associated disease
     Dosage: UNK
     Dates: start: 20230530
  5. TOCILIZUMAB [Concomitant]
     Active Substance: TOCILIZUMAB
     Dosage: 8 MG/KG, EVERY 4 WEEKS
     Dates: start: 202202
  6. TOCILIZUMAB [Concomitant]
     Active Substance: TOCILIZUMAB
     Dosage: 162 MG, EVERY 2 WEEKS

REACTIONS (4)
  - COVID-19 [Unknown]
  - Pseudomonas infection [Unknown]
  - Drug ineffective for unapproved indication [Recovered/Resolved]
  - Off label use [Recovered/Resolved]

NARRATIVE: CASE EVENT DATE: 20200401
